FAERS Safety Report 4692544-2 (Version None)
Quarter: 2005Q2

REPORT INFORMATION
  Report Type: 
  Country: None (occurrence: None)
  Receive Date: 20050617
  Receipt Date: 20050607
  Transmission Date: 20051028
  Serious: Yes (Hospitalization)
  Sender: FDA-Public Use
  Company Number: KR-JNJFOC-20050602243

PATIENT
  Sex: Male

DRUGS (5)
  1. ULTRACET [Suspect]
     Indication: PAIN MANAGEMENT
     Route: 049
  2. AIRTAL [Concomitant]
     Indication: PAIN MANAGEMENT
     Route: 049
  3. SIRDALUD [Concomitant]
     Route: 049
  4. STILLEN [Concomitant]
     Route: 049
  5. RENORMAL [Concomitant]
     Route: 049

REACTIONS (1)
  - SURGERY [None]
